FAERS Safety Report 9130333 (Version 1)
Quarter: 2013Q1

REPORT INFORMATION
  Report Type: Spontaneous
  Country: NL (occurrence: NL)
  Receive Date: 20130228
  Receipt Date: 20130228
  Transmission Date: 20140127
  Serious: Yes (Death)
  Sender: FDA-Public Use
  Company Number: NL-BAXTER-2013BAX004420

PATIENT
  Sex: Male

DRUGS (3)
  1. EXTRANEAL [Suspect]
     Indication: RENAL FAILURE
     Dosage: 2L TWIN BAG 2L/2L
     Route: 033
  2. PHYSIONEAL 40 GLUCOSE 2.27% W/V / 22.7 MG/ML [Suspect]
     Indication: RENAL FAILURE
     Dosage: 2L TWINBAG 4 X 2000 ML
     Route: 033
  3. PHYSIONEAL [Suspect]
     Indication: RENAL FAILURE
     Dosage: 2 000ML TWINBAG
     Route: 033

REACTIONS (1)
  - Death [Fatal]
